FAERS Safety Report 25095391 (Version 5)
Quarter: 2025Q2

REPORT INFORMATION
  Report Type: Spontaneous
  Country: US (occurrence: US)
  Receive Date: 20250319
  Receipt Date: 20250619
  Transmission Date: 20250716
  Serious: No
  Sender: BIOGEN
  Company Number: US-BIOGEN-2025BI01304510

PATIENT
  Age: 72 Year
  Sex: Female

DRUGS (4)
  1. VUMERITY [Suspect]
     Active Substance: DIROXIMEL FUMARATE
     Indication: Multiple sclerosis
     Route: 050
     Dates: start: 20250307
  2. VUMERITY [Suspect]
     Active Substance: DIROXIMEL FUMARATE
     Route: 050
     Dates: start: 20250314
  3. VUMERITY [Suspect]
     Active Substance: DIROXIMEL FUMARATE
     Route: 050
     Dates: start: 20250322
  4. VUMERITY [Suspect]
     Active Substance: DIROXIMEL FUMARATE
     Dosage: REDUCING THE DOSE TO 1 CAPSULE TWICE A DAY
     Route: 050
     Dates: start: 20250404

REACTIONS (6)
  - Drug ineffective [Unknown]
  - Fatigue [Not Recovered/Not Resolved]
  - Headache [Recovered/Resolved]
  - Aphasia [Unknown]
  - Diarrhoea [Recovered/Resolved]
  - Nausea [Recovered/Resolved]

NARRATIVE: CASE EVENT DATE: 20250301
